FAERS Safety Report 20928432 (Version 2)
Quarter: 2023Q1

REPORT INFORMATION
  Report Type: Spontaneous
  Country: US (occurrence: US)
  Receive Date: 20220607
  Receipt Date: 20230214
  Transmission Date: 20230417
  Serious: No
  Sender: FDA-Public Use
  Company Number: US-LUPIN PHARMACEUTICALS INC.-2022-08073

PATIENT

DRUGS (1)
  1. ALBUTEROL SULFATE [Suspect]
     Active Substance: ALBUTEROL SULFATE
     Indication: Product used for unknown indication
     Dosage: UNK, PRN (ON AS NEEDED BASIS)
     Dates: start: 20220509

REACTIONS (5)
  - Wrong technique in product usage process [Unknown]
  - Device malfunction [Unknown]
  - Device deposit issue [Unknown]
  - Product delivery mechanism issue [Unknown]
  - No adverse event [Unknown]
